FAERS Safety Report 16600625 (Version 1)
Quarter: 2019Q3

REPORT INFORMATION
  Report Type: Report from Study
  Country: MX (occurrence: MX)
  Receive Date: 20190719
  Receipt Date: 20190719
  Transmission Date: 20191004
  Serious: Yes (Other)
  Sender: FDA-Public Use
  Company Number: PHHY2019MX167737

PATIENT
  Sex: Male

DRUGS (16)
  1. ATORVASTATIN [Suspect]
     Active Substance: ATORVASTATIN
     Indication: CARDIAC FAILURE
     Dosage: 20 MG, UNK
     Route: 065
  2. MIRADON [Concomitant]
     Active Substance: ANISINDIONE
     Indication: CARDIAC DISORDER
     Route: 065
  3. MIRADON [Concomitant]
     Active Substance: ANISINDIONE
     Indication: ANGINA PECTORIS
  4. BEZAFIBRATO [Concomitant]
     Indication: CARDIAC DISORDER
     Route: 065
  5. CORDARONE [Concomitant]
     Active Substance: AMIODARONE HYDROCHLORIDE
     Indication: ANGINA PECTORIS
  6. BEZAFIBRATO [Concomitant]
     Indication: ANGINA PECTORIS
  7. CORDARONE [Concomitant]
     Active Substance: AMIODARONE HYDROCHLORIDE
     Indication: CARDIAC DISORDER
     Dosage: UNK
     Route: 065
  8. METOPROLOL. [Suspect]
     Active Substance: METOPROLOL
     Indication: CARDIAC DISORDER
  9. METOPROLOL. [Suspect]
     Active Substance: METOPROLOL
     Indication: ANGINA PECTORIS
  10. ATORVASTATIN [Suspect]
     Active Substance: ATORVASTATIN
     Indication: ANGINA PECTORIS
  11. ENALAPRIL [Concomitant]
     Active Substance: ENALAPRIL
     Indication: CARDIAC FAILURE
     Dosage: 10 MG, UNK
     Route: 065
  12. ASPIRINE PROTECT [Concomitant]
     Active Substance: ASPIRIN
     Indication: CARDIAC DISORDER
     Dosage: UNK
     Route: 065
  13. ASPIRINE PROTECT [Concomitant]
     Active Substance: ASPIRIN
     Indication: ANGINA PECTORIS
  14. METOPROLOL. [Suspect]
     Active Substance: METOPROLOL
     Indication: CARDIAC FAILURE
     Route: 065
  15. SPIRONOLACTONE. [Concomitant]
     Active Substance: SPIRONOLACTONE
     Indication: CARDIAC FAILURE
     Dosage: 25 MG, UNK
     Route: 065
  16. PAROXETIN [Concomitant]
     Active Substance: PAROXETINE HYDROCHLORIDE
     Indication: STRESS
     Route: 065

REACTIONS (6)
  - Infarction [Unknown]
  - Drug ineffective for unapproved indication [Recovered/Resolved]
  - Mobility decreased [Unknown]
  - Swelling [Unknown]
  - Cerebral infarction [Unknown]
  - Feeling abnormal [Recovered/Resolved]
